FAERS Safety Report 8887242 (Version 1)
Quarter: 2012Q4

REPORT INFORMATION
  Report Type: 
  Country: JP (occurrence: JP)
  Receive Date: 20121105
  Receipt Date: 20121105
  Transmission Date: 20130627
  Serious: Yes (Other)
  Sender: FDA-Public Use
  Company Number: JP-PFIZER INC-2012271164

PATIENT
  Sex: Male

DRUGS (1)
  1. AZULFIDINE EN [Suspect]
     Indication: RHEUMATOID ARTHRITIS
     Dosage: 500 mg, 2x/day
     Route: 048
     Dates: start: 201209

REACTIONS (1)
  - Blood pressure increased [Unknown]
